FAERS Safety Report 6938233-2 (Version None)
Quarter: 2010Q3

REPORT INFORMATION
  Report Type: 
  Country: None (occurrence: None)
  Receive Date: 20100824
  Receipt Date: 20090724
  Transmission Date: 20110219
  Serious: No
  Sender: FDA-Public Use
  Company Number: A0798608A

PATIENT
  Age: 54 Year
  Sex: Female

DRUGS (3)
  1. MALARONE [Suspect]
     Dosage: 1TAB THREE TIMES PER DAY
     Route: 048
     Dates: start: 20090608
  2. ALINIA [Concomitant]
  3. CLARITHROMYCIN [Concomitant]

REACTIONS (2)
  - ABDOMINAL PAIN [None]
  - DIARRHOEA [None]
